FAERS Safety Report 20740022 (Version 1)
Quarter: 2022Q2

REPORT INFORMATION
  Report Type: Spontaneous
  Country: US (occurrence: US)
  Receive Date: 20220422
  Receipt Date: 20220422
  Transmission Date: 20220720
  Serious: No
  Sender: FDA-Public Use
  Company Number: US-PFIZER INC-202200469087

PATIENT
  Age: 80 Year
  Sex: Female
  Weight: 80.9 kg

DRUGS (5)
  1. FLUCONAZOLE [Interacting]
     Active Substance: FLUCONAZOLE
     Dosage: UNK
  2. LEVOFLOXACIN [Interacting]
     Active Substance: LEVOFLOXACIN
     Dosage: UNK
  3. VENETOCLAX [Interacting]
     Active Substance: VENETOCLAX
     Dosage: UNK
  4. BOSENTAN [Interacting]
     Active Substance: BOSENTAN
     Dosage: UNK
     Dates: end: 202203
  5. SILDENAFIL CITRATE [Concomitant]
     Active Substance: SILDENAFIL CITRATE
     Dosage: UNK

REACTIONS (1)
  - Drug interaction [Unknown]
